FAERS Safety Report 17009129 (Version 3)
Quarter: 2020Q3

REPORT INFORMATION
  Report Type: Report from Study
  Country: CH (occurrence: CH)
  Receive Date: 20191108
  Receipt Date: 20200716
  Transmission Date: 20201102
  Serious: No
  Sender: FDA-Public Use
  Company Number: CH-BEH-2017081387

PATIENT
  Sex: Male

DRUGS (6)
  1. HIZENTRA [Suspect]
     Active Substance: HUMAN IMMUNOGLOBULIN G
     Dosage: 40ML, QOW
     Route: 058
  2. HIZENTRA [Suspect]
     Active Substance: HUMAN IMMUNOGLOBULIN G
     Dosage: 8 GRAMS, EVERY TWO WEEKS
     Route: 058
  3. HIZENTRA [Suspect]
     Active Substance: HUMAN IMMUNOGLOBULIN G
     Dosage: 8 G/40ML, QOW
     Route: 058
  4. HIZENTRA [Suspect]
     Active Substance: HUMAN IMMUNOGLOBULIN G
     Indication: CHRONIC LYMPHOCYTIC LEUKAEMIA
     Dosage: 8 G, QW
     Route: 058
     Dates: start: 20160613
  5. HIZENTRA [Suspect]
     Active Substance: HUMAN IMMUNOGLOBULIN G
     Dosage: 8 G, UNK
     Route: 058
     Dates: start: 201706, end: 201706
  6. HIZENTRA [Suspect]
     Active Substance: HUMAN IMMUNOGLOBULIN G
     Dosage: 40 ML, QW
     Route: 058

REACTIONS (10)
  - Administration site erythema [Not Recovered/Not Resolved]
  - Administration site induration [Not Recovered/Not Resolved]
  - Administration site reaction [Recovered/Resolved]
  - Skin reaction [Not Recovered/Not Resolved]
  - Infusion site induration [Not Recovered/Not Resolved]
  - Administration site reaction [Not Recovered/Not Resolved]
  - Infusion site swelling [Not Recovered/Not Resolved]
  - Administration site swelling [Not Recovered/Not Resolved]
  - Infusion site erythema [Recovered/Resolved]
  - Administration site reaction [Not Recovered/Not Resolved]

NARRATIVE: CASE EVENT DATE: 20160613
